FAERS Safety Report 4756883-9 (Version None)
Quarter: 2005Q3

REPORT INFORMATION
  Report Type: 
  Country: None (occurrence: None)
  Receive Date: 20050830
  Receipt Date: 20050613
  Transmission Date: 20060218
  Serious: No
  Sender: FDA-Public Use
  Company Number: US-GLAXOSMITHKLINE-A0562421A

PATIENT
  Age: 80 Year
  Sex: Male

DRUGS (4)
  1. AVODART [Suspect]
     Indication: BENIGN PROSTATIC HYPERPLASIA
     Dosage: 1CAP PER DAY
     Route: 048
  2. CARDURA [Concomitant]
  3. MULTI-VITAMIN [Concomitant]
  4. TOPROL-XL [Concomitant]

REACTIONS (1)
  - PROSTATIC SPECIFIC ANTIGEN INCREASED [None]
